FAERS Safety Report 13821020 (Version 4)
Quarter: 2017Q4

REPORT INFORMATION
  Report Type: Report from Study
  Country: US (occurrence: BR)
  Receive Date: 20170801
  Receipt Date: 20171003
  Transmission Date: 20180320
  Serious: Yes (Hospitalization, Other)
  Sender: FDA-Public Use
  Company Number: US-SUNOVION-2017SUN003387

PATIENT
  Sex: Female
  Weight: 72 kg

DRUGS (2)
  1. INDACATEROL AND GLYCOPYRROLATE [Suspect]
     Active Substance: GLYCOPYRROLATE\INDACATEROL MALEATE
     Indication: CHRONIC OBSTRUCTIVE PULMONARY DISEASE
     Dosage: 1 DF (110MCG+50MCG), QD
     Route: 055
     Dates: start: 201705
  2. SPIRIVA [Concomitant]
     Active Substance: TIOTROPIUM BROMIDE MONOHYDRATE

REACTIONS (7)
  - Respiratory failure [Unknown]
  - Renal failure [Unknown]
  - Pneumonia [Recovering/Resolving]
  - Condition aggravated [Unknown]
  - Dyspnoea [Unknown]
  - Anaemia [Unknown]
  - Malaise [Unknown]
